FAERS Safety Report 7724405-6 (Version None)
Quarter: 2011Q3

REPORT INFORMATION
  Report Type: 
  Country: None (occurrence: None)
  Receive Date: 20110901
  Receipt Date: 20110808
  Transmission Date: 20111222
  Serious: No
  Sender: FDA-Public Use
  Company Number: US-B.I. PHARMACEUTICALS,INC./RIDGEFIELD-2011-BP-19666BP

PATIENT
  Sex: Male

DRUGS (15)
  1. MULTI-VITAMIN [Concomitant]
     Indication: ROUTINE HEALTH MAINTENANCE
     Dates: start: 19700101
  2. LOVAZA [Concomitant]
     Indication: ROUTINE HEALTH MAINTENANCE
     Dates: start: 19800101
  3. ISOSORBIDE DINITRATE [Concomitant]
     Indication: BLOOD CHOLESTEROL INCREASED
     Dosage: 30 MG
     Route: 048
     Dates: start: 19800101
  4. HYDROCHLOROTHIAZIDE [Concomitant]
     Indication: OEDEMA
     Dosage: 12.5 MG
     Route: 048
     Dates: start: 20090101
  5. CO Q10 [Concomitant]
     Indication: ROUTINE HEALTH MAINTENANCE
     Dosage: 50 MG
     Route: 048
     Dates: start: 19900101
  6. ASPIRIN [Concomitant]
     Indication: BLOOD CHOLESTEROL INCREASED
     Dosage: 325 MG
     Route: 048
     Dates: start: 20000101
  7. CALCIUM CARBONATE [Concomitant]
     Indication: ROUTINE HEALTH MAINTENANCE
     Dates: start: 19800101
  8. LISINOPRIL [Concomitant]
     Indication: HYPERTENSION
     Dosage: 40 MG
     Route: 048
     Dates: start: 19800101
  9. GLIMEPIRIDE [Concomitant]
     Indication: TYPE 2 DIABETES MELLITUS
     Dosage: 2 MG
     Route: 048
     Dates: start: 20080101
  10. GLUCOSAMINE [Concomitant]
     Indication: ROUTINE HEALTH MAINTENANCE
     Dosage: 1500 MG
     Route: 048
     Dates: start: 19800101
  11. METOPROLOL TARTRATE [Concomitant]
     Indication: HYPERTENSION
     Dosage: 100 MG
     Route: 048
     Dates: start: 19800101
  12. DILTIAZEM [Concomitant]
     Indication: HYPERTENSION
     Dosage: 180 MG
     Route: 048
     Dates: start: 19700101
  13. SPIRIVA [Suspect]
     Indication: CHRONIC OBSTRUCTIVE PULMONARY DISEASE
     Dosage: 18 MCG
     Route: 055
     Dates: start: 20110618
  14. TRAZODONE HYDROCHLORIDE [Concomitant]
     Indication: DEPRESSION
     Dosage: 50 MG
     Route: 048
     Dates: start: 19700101
  15. SIMVASTATIN [Concomitant]
     Indication: BLOOD CHOLESTEROL INCREASED
     Dosage: 20 MG
     Route: 048
     Dates: start: 19800101

REACTIONS (1)
  - DRUG INEFFECTIVE [None]
